FAERS Safety Report 4685535-9 (Version None)
Quarter: 2005Q2

REPORT INFORMATION
  Report Type: 
  Country: None (occurrence: None)
  Receive Date: 20050608
  Receipt Date: 20050531
  Transmission Date: 20051028
  Serious: Yes (Hospitalization)
  Sender: FDA-Public Use
  Company Number: 2005SE03199

PATIENT
  Age: 9728 Day
  Sex: Male

DRUGS (12)
  1. QUETIAPINE [Suspect]
     Indication: MENTAL DISORDER
     Route: 048
     Dates: start: 20050409, end: 20050501
  2. QUETIAPINE [Suspect]
     Route: 048
     Dates: start: 20050501, end: 20050501
  3. QUETIAPINE [Suspect]
     Dosage: DOSE NOT SPECIFIED
     Route: 048
     Dates: start: 20050501
  4. BUSPIRONE HCL [Concomitant]
     Route: 048
  5. LERGIGAN [Concomitant]
     Indication: ANXIETY
     Route: 048
  6. IBUMETIN [Concomitant]
     Indication: NECK PAIN
     Route: 048
  7. IBUMETIN [Concomitant]
     Indication: SHOULDER PAIN
     Route: 048
  8. IBUMETIN [Concomitant]
     Indication: HEADACHE
     Route: 048
  9. PARACETAMOL [Concomitant]
     Indication: HEADACHE
     Route: 048
  10. PARACETAMOL [Concomitant]
     Indication: PYREXIA
     Route: 048
  11. XYLOPROCT [Concomitant]
     Indication: HAEMORRHOIDS
  12. ECHINAGARD [Concomitant]
     Indication: NASOPHARYNGITIS
     Route: 048

REACTIONS (2)
  - CONDITION AGGRAVATED [None]
  - PSYCHOTIC DISORDER [None]
